FAERS Safety Report 17294996 (Version 5)
Quarter: 2021Q1

REPORT INFORMATION
  Report Type: Spontaneous
  Country: US (occurrence: US)
  Receive Date: 20200121
  Receipt Date: 20210104
  Transmission Date: 20210419
  Serious: Yes (Hospitalization, Other)
  Sender: FDA-Public Use
  Company Number: US-PFIZER INC-2020022822

PATIENT
  Age: 81 Year
  Sex: Male
  Weight: 78 kg

DRUGS (12)
  1. VYNDAQEL [Suspect]
     Active Substance: TAFAMIDIS MEGLUMINE
     Dosage: 80 MG (FOUR 20 MG CAPSULES) ONCE A DAY AFTER BREAKFAST
     Dates: start: 20191121, end: 20200109
  2. PLAVIX [Concomitant]
     Active Substance: CLOPIDOGREL BISULFATE
     Indication: BLOOD DISORDER
     Dosage: 75 MG, 1X/DAY
     Dates: start: 2008
  3. FUROSEMIDE. [Concomitant]
     Active Substance: FUROSEMIDE
     Indication: FLUID RETENTION
     Dosage: 60 MG, DAILY (40MG IN THE MORNING AND 20MG AT NIGHT)
     Dates: start: 2017
  4. IRON [Concomitant]
     Active Substance: IRON
     Dosage: UNK, 3X/DAY (TAKES THIS 3 TIMES A DAY WHICH MAY BE THE ISSUE)
  5. VYNDAQEL [Suspect]
     Active Substance: TAFAMIDIS MEGLUMINE
     Dosage: 80 MG (FOUR CAPSULES), DAILY
     Route: 048
     Dates: start: 201911
  6. MIDODRINE [Concomitant]
     Active Substance: MIDODRINE
     Indication: HYPOTENSION
     Dosage: 0.5 MG, 2X/DAY
     Dates: start: 2017
  7. DUTASTERIDE. [Concomitant]
     Active Substance: DUTASTERIDE
     Indication: PROSTATIC DISORDER
     Dosage: 0.5 MG, 1X/DAY
  8. ALLOPURINOL. [Concomitant]
     Active Substance: ALLOPURINOL
     Indication: BLOOD URIC ACID
     Dosage: 300 MG, 1X/DAY
  9. ATORVASTATIN [Concomitant]
     Active Substance: ATORVASTATIN
     Indication: BLOOD CHOLESTEROL
     Dosage: 40 MG, 1X/DAY
  10. VITAMIN C [Concomitant]
     Active Substance: ASCORBIC ACID
     Dosage: UNK
  11. VYNDAQEL [Suspect]
     Active Substance: TAFAMIDIS MEGLUMINE
     Indication: CARDIAC AMYLOIDOSIS
     Dosage: TOOK THE MEDICATION AT NIGHT
  12. CARVEDILOL. [Concomitant]
     Active Substance: CARVEDILOL
     Indication: CARDIAC DISORDER
     Dosage: 3.125 MG, 2X/DAY
     Dates: start: 2008

REACTIONS (4)
  - Feeling abnormal [Not Recovered/Not Resolved]
  - Asthenia [Recovered/Resolved]
  - Product prescribing error [Unknown]
  - Thrombosis [Not Recovered/Not Resolved]

NARRATIVE: CASE EVENT DATE: 20190107
